FAERS Safety Report 5726052-4 (Version None)
Quarter: 2008Q2

REPORT INFORMATION
  Report Type: 
  Country: None (occurrence: None)
  Receive Date: 20080501
  Receipt Date: 20080501
  Transmission Date: 20081010
  Serious: Yes (Other)
  Sender: FDA-Public Use
  Company Number: None

PATIENT
  Age: 69 Year
  Sex: Female
  Weight: 74.8435 kg

DRUGS (3)
  1. RECLAST [Suspect]
     Indication: OSTEOPOROSIS
     Dosage: 5 MG ONCE IV
     Route: 042
     Dates: start: 20080422, end: 20080422
  2. RECLAST [Suspect]
     Indication: PARATHYROID DISORDER
     Dosage: 5 MG ONCE IV
     Route: 042
     Dates: start: 20080422, end: 20080422
  3. RECLAST [Suspect]
     Indication: THYROID DISORDER
     Dosage: 5 MG ONCE IV
     Route: 042
     Dates: start: 20080422, end: 20080422

REACTIONS (17)
  - ARTHRALGIA [None]
  - ASTHENIA [None]
  - COLD SWEAT [None]
  - DIZZINESS [None]
  - ENDOCRINE DISORDER [None]
  - HOT FLUSH [None]
  - IMPAIRED DRIVING ABILITY [None]
  - INCONTINENCE [None]
  - INFLUENZA LIKE ILLNESS [None]
  - INFUSION RELATED REACTION [None]
  - INNER EAR DISORDER [None]
  - INSOMNIA [None]
  - MENOPAUSAL SYMPTOMS [None]
  - MUSCLE SPASMS [None]
  - MYALGIA [None]
  - NAUSEA [None]
  - VOMITING [None]
